FAERS Safety Report 24302532 (Version 1)
Quarter: 2024Q3

REPORT INFORMATION
  Report Type: Spontaneous
  Country: US (occurrence: US)
  Receive Date: 20240910
  Receipt Date: 20240910
  Transmission Date: 20241016
  Serious: Yes (Other)
  Sender: SANOFI AVENTIS
  Company Number: US-SANOFI-02209064

PATIENT
  Sex: Female

DRUGS (1)
  1. DUPIXENT [Suspect]
     Active Substance: DUPILUMAB
     Indication: Dermatitis atopic
     Dosage: UNK
     Dates: start: 2023

REACTIONS (4)
  - Cutaneous T-cell lymphoma [Unknown]
  - Skin hypopigmentation [Unknown]
  - Skin plaque [Unknown]
  - Psoriasis [Unknown]
